FAERS Safety Report 9748293 (Version 1)
Quarter: 2013Q4

REPORT INFORMATION
  Report Type: Spontaneous
  Country: FR (occurrence: None)
  Receive Date: 20131206
  Receipt Date: 20131206
  Transmission Date: 20140711
  Serious: Yes (Hospitalization)
  Sender: FDA-Public Use
  Company Number: SYM-2013-13627

PATIENT
  Age: 35 Year
  Sex: Female

DRUGS (7)
  1. FLAGYL [Suspect]
     Dates: start: 20130925, end: 20130927
  2. FLAGYL [Suspect]
     Dates: start: 20130925, end: 20130927
  3. AMIKACIN (AMIKACIN) (AMIKACIN) [Suspect]
     Dates: start: 20130917
  4. AMIKACIN (AMIKACIN) (AMIKACIN) [Suspect]
     Dates: start: 20130917
  5. CEFOTAXIME [Suspect]
     Dates: start: 20130925, end: 20130926
  6. CEFOTAXIME [Suspect]
     Dates: start: 20130925, end: 20130926
  7. CONTRAST MEDIA (CONTRAST MEDIA) (INJECTION) [Concomitant]

REACTIONS (2)
  - Renal failure acute [None]
  - Nephropathy [None]
